FAERS Safety Report 17793707 (Version 3)
Quarter: 2020Q4

REPORT INFORMATION
  Report Type: Report from Study
  Country: US (occurrence: US)
  Receive Date: 20200515
  Receipt Date: 20201118
  Transmission Date: 20210113
  Serious: Yes (Hospitalization, Other)
  Sender: FDA-Public Use
  Company Number: US-SA-2020SA108792

PATIENT

DRUGS (25)
  1. HYDROXYCHLOROQUINE [Concomitant]
     Active Substance: HYDROXYCHLOROQUINE
     Dosage: 200 MG, QD
     Route: 048
     Dates: start: 20200325, end: 20200329
  2. AZTREONAM. [Concomitant]
     Active Substance: AZTREONAM
     Indication: COVID-19 PNEUMONIA
     Dosage: 1000 MG, TID
     Route: 042
     Dates: start: 20200403, end: 20200406
  3. NORVASC [Concomitant]
     Active Substance: AMLODIPINE BESYLATE
     Indication: ARRHYTHMIA
     Dosage: 5 MG, SINGLE
     Route: 048
     Dates: start: 20200409, end: 20200409
  4. NOREPINEPHRINE. [Concomitant]
     Active Substance: NOREPINEPHRINE
     Indication: HYPOTENSION
     Dosage: 1-30 MCG/MIN, CONTINUOUS
     Route: 042
     Dates: start: 20200404, end: 20200405
  5. NOREPINEPHRINE. [Concomitant]
     Active Substance: NOREPINEPHRINE
     Dosage: 5-30 MCG/MIN, CONTINUOUS
     Route: 042
     Dates: start: 20200406, end: 20200406
  6. NOREPINEPHRINE. [Concomitant]
     Active Substance: NOREPINEPHRINE
     Dosage: 1-30 MCG/MIN, CONTINUOUS
     Route: 042
     Dates: start: 20200409, end: 20200412
  7. HYDROXYCHLOROQUINE [Concomitant]
     Active Substance: HYDROXYCHLOROQUINE
     Indication: COVID-19
     Dosage: 400 MG, 1X
     Route: 048
     Dates: start: 20200324, end: 20200324
  8. VANCOMYCIN [Concomitant]
     Active Substance: VANCOMYCIN
     Indication: BACTERAEMIA
     Dosage: 1250 MG, TOTAL
     Route: 042
     Dates: start: 20200414, end: 20200414
  9. METHYLPREDNISOLONE. [Concomitant]
     Active Substance: METHYLPREDNISOLONE
     Dosage: 20 MG FREQUENCY REDUCED
     Route: 042
     Dates: start: 20200420, end: 20200421
  10. SARILUMAB [Suspect]
     Active Substance: SARILUMAB
     Dosage: 200 MG, 1X
     Route: 042
     Dates: start: 20200423, end: 20200423
  11. AZITHROMYCIN ANHYDROUS. [Concomitant]
     Active Substance: AZITHROMYCIN ANHYDROUS
     Indication: COVID-19 PNEUMONIA
     Dosage: 500 MG, QD
     Route: 048
     Dates: start: 20200322, end: 20200404
  12. VANCOMYCIN [Concomitant]
     Active Substance: VANCOMYCIN
     Indication: SEPSIS
     Dosage: 1250 MG, TOTAL
     Route: 042
     Dates: start: 20200410, end: 20200411
  13. CEFTRIAXONE. [Concomitant]
     Active Substance: CEFTRIAXONE
     Indication: COVID-19 PNEUMONIA
     Dosage: 1000 MG, QD
     Route: 042
     Dates: start: 20200322, end: 20200322
  14. DOXYCYCLINE. [Concomitant]
     Active Substance: DOXYCYCLINE
     Indication: PNEUMONIA
     Dosage: 100 MG, BID
     Route: 048
     Dates: start: 20200324, end: 20200329
  15. SARILUMAB [Suspect]
     Active Substance: SARILUMAB
     Dosage: 200 MG, 1X
     Route: 042
     Dates: start: 20200415, end: 20200415
  16. METHYLPREDNISOLONE. [Concomitant]
     Active Substance: METHYLPREDNISOLONE
     Dosage: 30 MG, TID; 30 MG REDUCED FROM PREVIOUS DOSE
     Route: 042
     Dates: start: 20200410, end: 20200418
  17. METHYLPREDNISOLONE. [Concomitant]
     Active Substance: METHYLPREDNISOLONE
     Dosage: 20 MG, TID; 20 MG REDUCED FROM PREVIOUS DOSE
     Route: 042
     Dates: start: 20200418, end: 20200420
  18. AZTREONAM. [Concomitant]
     Active Substance: AZTREONAM
     Dosage: 2000 MG, TID
     Route: 042
     Dates: start: 20200406, end: 20200414
  19. ASPIRIN [ACETYLSALICYLIC ACID] [Concomitant]
     Active Substance: ASPIRIN
     Indication: ANTICOAGULANT THERAPY
     Dosage: 81 MG, QD
     Route: 048
     Dates: start: 20200427
  20. ACETAMINOPHEN. [Concomitant]
     Active Substance: ACETAMINOPHEN
     Dosage: 650 MG, AS NECESSARY
     Route: 048
     Dates: start: 20200322
  21. ACETAMINOPHEN. [Concomitant]
     Active Substance: ACETAMINOPHEN
     Indication: PYREXIA
  22. AZITHROMYCIN ANHYDROUS. [Concomitant]
     Active Substance: AZITHROMYCIN ANHYDROUS
     Dosage: 250 MG, QD
     Route: 048
     Dates: start: 20200405, end: 20200408
  23. VANCOMYCIN [Concomitant]
     Active Substance: VANCOMYCIN
     Indication: SHOCK
     Dosage: 1500 MG, QD
     Route: 042
     Dates: start: 20200401, end: 20200408
  24. METHYLPREDNISOLONE. [Concomitant]
     Active Substance: METHYLPREDNISOLONE
     Indication: INFLAMMATION
     Dosage: 40 MG, TID
     Route: 042
     Dates: start: 20200408, end: 20200410
  25. SARILUMAB [Suspect]
     Active Substance: SARILUMAB
     Indication: COVID-19
     Dosage: 200 MG, 1X
     Route: 042
     Dates: start: 20200326, end: 20200326

REACTIONS (5)
  - Gastric ulcer [Not Recovered/Not Resolved]
  - Alanine aminotransferase increased [Recovered/Resolved]
  - Acute kidney injury [Recovered/Resolved]
  - Aspartate aminotransferase increased [Recovered/Resolved]
  - Bacteraemia [Recovered/Resolved]

NARRATIVE: CASE EVENT DATE: 20200403
